FAERS Safety Report 15997193 (Version 2)
Quarter: 2019Q1

REPORT INFORMATION
  Report Type: Spontaneous
  Country: US (occurrence: US)
  Receive Date: 20190222
  Receipt Date: 20190306
  Transmission Date: 20190418
  Serious: Yes (Other)
  Sender: FDA-Public Use
  Company Number: PHEH2019US007860

PATIENT
  Sex: Male

DRUGS (1)
  1. TASIGNA [Suspect]
     Active Substance: NILOTINIB
     Indication: CHRONIC MYELOID LEUKAEMIA
     Dosage: 02 DF, BID
     Route: 048
     Dates: start: 201612

REACTIONS (22)
  - Abdominal distension [Unknown]
  - Cough [Unknown]
  - Fatigue [Unknown]
  - Hypoxia [Unknown]
  - Vision blurred [Unknown]
  - Anxiety [Unknown]
  - Wheezing [Unknown]
  - Tricuspid valve incompetence [Unknown]
  - Peripheral artery occlusion [Unknown]
  - Oedema [Unknown]
  - Mitral valve incompetence [Unknown]
  - Sleep apnoea syndrome [Unknown]
  - Muscular weakness [Unknown]
  - Paraesthesia [Unknown]
  - Hypoaesthesia [Unknown]
  - Chest pain [Unknown]
  - Arthralgia [Unknown]
  - Epicondylitis [Unknown]
  - Pain in extremity [Unknown]
  - Peripheral vascular disorder [Unknown]
  - Dizziness [Unknown]
  - Dyspnoea [Unknown]
